FAERS Safety Report 7095265-4 (Version None)
Quarter: 2010Q4

REPORT INFORMATION
  Report Type: 
  Country: None (occurrence: None)
  Receive Date: 20101111
  Receipt Date: 20101028
  Transmission Date: 20110411
  Serious: Yes (Hospitalization)
  Sender: FDA-Public Use
  Company Number: GB-RANBAXY-2010R1-39232

PATIENT

DRUGS (6)
  1. FLUOXETINE [Suspect]
     Indication: DEPRESSION
     Dosage: 40 MG, QD
     Route: 048
     Dates: end: 20101014
  2. ACAMPROSATE [Concomitant]
     Indication: ALCOHOL USE
     Dosage: 666 MG, TID
     Route: 048
  3. CLOBETASOL PROPIONATE [Concomitant]
     Indication: RASH
     Dosage: UNK
     Route: 061
     Dates: start: 20100901, end: 20101001
  4. THIAMINE HCL [Concomitant]
     Indication: ALCOHOL USE
     Dosage: 100 MG, QD
     Route: 048
  5. TRIMOVATE [Concomitant]
     Indication: RASH
     Dosage: UNK
     Route: 061
     Dates: start: 20100901, end: 20101001
  6. VITAMIN TAB [Concomitant]
     Indication: ALCOHOL USE
     Dosage: 1 DF, QD
     Route: 048

REACTIONS (2)
  - LICHEN PLANUS [None]
  - ORAL LICHEN PLANUS [None]
